FAERS Safety Report 18114149 (Version 3)
Quarter: 2020Q3

REPORT INFORMATION
  Report Type: Report from Study
  Country: US (occurrence: US)
  Receive Date: 20200805
  Receipt Date: 20200919
  Transmission Date: 20201103
  Serious: No
  Sender: FDA-Public Use
  Company Number: NVSC2020US210751

PATIENT
  Sex: Male

DRUGS (3)
  1. COSENTYX [Suspect]
     Active Substance: SECUKINUMAB
     Indication: PSORIASIS
     Dosage: 300 MG, QW (EVERY WEEK X 5 WEEKS AND THEN EVERY 4 WEEKS)
     Route: 058
  2. COSENTYX [Suspect]
     Active Substance: SECUKINUMAB
     Indication: PSORIASIS
     Dosage: 300 MG (MAINTAINANCE DOSE)
     Route: 058
     Dates: start: 20200726
  3. COSENTYX [Suspect]
     Active Substance: SECUKINUMAB
     Dosage: 300 MG, UNKNOWN
     Route: 058

REACTIONS (7)
  - Psoriasis [Unknown]
  - Back pain [Unknown]
  - Arthralgia [Unknown]
  - Hair disorder [Unknown]
  - Inappropriate schedule of product administration [Unknown]
  - Erythema [Unknown]
  - Product dose omission issue [Unknown]
